FAERS Safety Report 6014545-4 (Version None)
Quarter: 2008Q4

REPORT INFORMATION
  Report Type: 
  Country: None (occurrence: None)
  Receive Date: 20081219
  Receipt Date: 20080811
  Transmission Date: 20090506
  Serious: No
  Sender: FDA-Public Use
  Company Number: A0741993A

PATIENT
  Age: 58 Year
  Sex: Male

DRUGS (7)
  1. AVODART [Suspect]
     Indication: BENIGN PROSTATIC HYPERPLASIA
     Dosage: 1CAPL PER DAY
     Route: 048
  2. DETROL [Concomitant]
  3. LIPITOR [Concomitant]
  4. CELEXA [Concomitant]
  5. CLONAZEPAM [Concomitant]
  6. DIAZEPAM [Concomitant]
  7. SAW PALMETTO [Concomitant]

REACTIONS (1)
  - HAEMATOSPERMIA [None]
